FAERS Safety Report 25656823 (Version 1)
Quarter: 2025Q3

REPORT INFORMATION
  Report Type: Spontaneous
  Country: GB (occurrence: GB)
  Receive Date: 20250807
  Receipt Date: 20250807
  Transmission Date: 20251021
  Serious: Yes (Death)
  Sender: JOHNSON AND JOHNSON
  Company Number: GB-JNJFOC-20250807907

PATIENT
  Age: 65 Year
  Sex: Male

DRUGS (4)
  1. RIVAROXABAN [Suspect]
     Active Substance: RIVAROXABAN
     Indication: Thrombosis
     Route: 048
  2. VANCOMYCIN [Suspect]
     Active Substance: VANCOMYCIN
     Indication: Vascular device infection
  3. GENTAMICIN [Suspect]
     Active Substance: GENTAMICIN
     Indication: Product used for unknown indication
  4. RIFAMPIN [Suspect]
     Active Substance: RIFAMPIN
     Indication: Product used for unknown indication

REACTIONS (3)
  - Drug reaction with eosinophilia and systemic symptoms [Fatal]
  - Product use in unapproved indication [Unknown]
  - Product prescribing issue [Unknown]
